FAERS Safety Report 6884325-6 (Version None)
Quarter: 2010Q3

REPORT INFORMATION
  Report Type: 
  Country: None (occurrence: None)
  Receive Date: 20100729
  Receipt Date: 20070701
  Transmission Date: 20110219
  Serious: No
  Sender: FDA-Public Use
  Company Number: US-PFIZER INC-2007053869

PATIENT
  Sex: Female
  Weight: 72.57 kg

DRUGS (1)
  1. CELEBREX [Suspect]
     Indication: PAIN
     Dates: start: 20070701

REACTIONS (3)
  - DYSPEPSIA [None]
  - ERUCTATION [None]
  - GASTRIC DISORDER [None]
